FAERS Safety Report 16689579 (Version 3)
Quarter: 2019Q3

REPORT INFORMATION
  Report Type: Not Available
  Country: GB (occurrence: GB)
  Receive Date: 20190809
  Receipt Date: 20190822
  Transmission Date: 20191004
  Serious: Yes (Death)
  Sender: FDA-Public Use
  Company Number: GB-LEXICON PHARMACEUTICALS, INC-19-1606-00803

PATIENT
  Age: 70 Year
  Sex: Female

DRUGS (1)
  1. TELOTRISTAT ETHYL [Suspect]
     Active Substance: TELOTRISTAT ETHYL
     Indication: CARCINOID SYNDROME
     Route: 048

REACTIONS (1)
  - Disease progression [Fatal]
